FAERS Safety Report 9693906 (Version 5)
Quarter: 2014Q1

REPORT INFORMATION
  Report Type: Spontaneous
  Country: US (occurrence: US)
  Receive Date: 20131118
  Receipt Date: 20140313
  Transmission Date: 20141002
  Serious: Yes (Other)
  Sender: FDA-Public Use
  Company Number: US-PFIZER INC-2013327214

PATIENT
  Sex: Male

DRUGS (2)
  1. LYRICA [Suspect]
     Dosage: UNK
  2. NEURONTIN [Suspect]
     Dosage: UNK

REACTIONS (4)
  - Dementia Alzheimer^s type [Unknown]
  - Activities of daily living impaired [Unknown]
  - Incontinence [Unknown]
  - Post herpetic neuralgia [Not Recovered/Not Resolved]
